FAERS Safety Report 25660980 (Version 1)
Quarter: 2025Q3

REPORT INFORMATION
  Report Type: Report from Study
  Country: CH (occurrence: CH)
  Receive Date: 20250808
  Receipt Date: 20250808
  Transmission Date: 20251021
  Serious: Yes (Hospitalization)
  Sender: EISAI
  Company Number: CH-Eisai-EC-2025-194326

PATIENT
  Sex: Male

DRUGS (8)
  1. LENVATINIB [Suspect]
     Active Substance: LENVATINIB
     Indication: Ewing^s sarcoma
     Dates: start: 20250519, end: 20250716
  2. IFOSFAMIDE [Suspect]
     Active Substance: IFOSFAMIDE
     Indication: Ewing^s sarcoma
     Dates: start: 20250519, end: 20250707
  3. FILGRASTIM [Concomitant]
     Active Substance: FILGRASTIM
  4. COTRIMOXAZOLE [Concomitant]
     Active Substance: SULFAMETHOXAZOLE\TRIMETHOPRIM
  5. PHOSCAP [Concomitant]
     Indication: Hypophosphataemia
     Dates: start: 20250622
  6. PALONOSETRON [Concomitant]
     Active Substance: PALONOSETRON
  7. ZOFRAN [Concomitant]
     Active Substance: ONDANSETRON HYDROCHLORIDE
     Indication: Vomiting
  8. LASIX [Concomitant]
     Active Substance: FUROSEMIDE
     Indication: Diuretic therapy

REACTIONS (1)
  - General physical health deterioration [Not Recovered/Not Resolved]

NARRATIVE: CASE EVENT DATE: 20250710
